FAERS Safety Report 19771195 (Version 1)
Quarter: 2021Q3

REPORT INFORMATION
  Report Type: Spontaneous
  Country: US (occurrence: US)
  Receive Date: 20210901
  Receipt Date: 20210901
  Transmission Date: 20211014
  Serious: Yes (Hospitalization)
  Sender: FDA-Public Use
  Company Number: US-ROCHE-2901632

PATIENT
  Age: 45 Year
  Sex: Female
  Weight: 148.1 kg

DRUGS (5)
  1. VOCLOSPORIN [Suspect]
     Active Substance: VOCLOSPORIN
     Indication: LUPUS NEPHRITIS
     Dosage: 15.8 MG TWICE A DAY, ONGOING : YES
     Route: 048
     Dates: start: 202106
  2. VOCLOSPORIN [Suspect]
     Active Substance: VOCLOSPORIN
     Route: 048
     Dates: start: 20210415
  3. HYDROXYCHLOROQUINE SULFATE. [Concomitant]
     Active Substance: HYDROXYCHLOROQUINE SULFATE
     Indication: LUPUS NEPHRITIS
  4. PREDNISOLONE. [Concomitant]
     Active Substance: PREDNISOLONE
     Indication: LUPUS NEPHRITIS
     Dosage: ONCE A DAY
  5. CELLCEPT [Suspect]
     Active Substance: MYCOPHENOLATE MOFETIL\MYCOPHENOLATE MOFETIL HYDROCHLORIDE
     Indication: LUPUS NEPHRITIS
     Route: 048

REACTIONS (5)
  - Neutropenia [Not Recovered/Not Resolved]
  - Mucosal inflammation [Recovered/Resolved]
  - Antibody test negative [Not Recovered/Not Resolved]
  - Off label use [Unknown]
  - White blood cell count decreased [Not Recovered/Not Resolved]

NARRATIVE: CASE EVENT DATE: 20210507
